FAERS Safety Report 4964556-2 (Version None)
Quarter: 2006Q2

REPORT INFORMATION
  Report Type: 
  Country: None (occurrence: None)
  Receive Date: 20060406
  Receipt Date: 20060323
  Transmission Date: 20061013
  Serious: Yes (Other)
  Sender: FDA-Public Use
  Company Number: BE-GLAXOSMITHKLINE-B0418912A

PATIENT

DRUGS (1)
  1. AVODART [Suspect]
     Indication: PROSTATIC DISORDER
     Dates: start: 20050601

REACTIONS (3)
  - BREAST CANCER [None]
  - BREAST ENGORGEMENT [None]
  - LYMPHADENOPATHY [None]
